FAERS Safety Report 9380125 (Version 1)
Quarter: 2013Q2

REPORT INFORMATION
  Report Type: Spontaneous
  Country: GB (occurrence: None)
  Receive Date: 20130628
  Receipt Date: 20130628
  Transmission Date: 20140414
  Serious: Yes (Hospitalization)
  Sender: FDA-Public Use
  Company Number: AUR-APL-2013-05128

PATIENT
  Age: 76 Year
  Sex: Female
  Weight: 57.15 kg

DRUGS (5)
  1. SIMVASTATIN (SIMVASTATIN) [Suspect]
     Indication: PRODUCT USED FOR UNKNOWN INDICATION
     Dates: start: 20130220
  2. CLOPODPFGREL (CLOPIDOGREL) [Concomitant]
  3. FLUCLOXACILLIN (FLUCLOXACILLIN) [Concomitant]
  4. FOLIC ACID (FOLIC ACID) [Concomitant]
  5. TRIMETHOPRIM (TRIMETHORPIM) [Concomitant]

REACTIONS (1)
  - Myositis [None]
